FAERS Safety Report 7558054-X (Version None)
Quarter: 2011Q2

REPORT INFORMATION
  Report Type: 
  Country: None (occurrence: None)
  Receive Date: 20110620
  Receipt Date: 20110610
  Transmission Date: 20111010
  Serious: Yes (Disabling, Other)
  Sender: FDA-Public Use
  Company Number: PHHY2010DK90452

PATIENT
  Sex: Male

DRUGS (14)
  1. CORDARONE [Interacting]
     Dosage: 200 MG, 1X/DAY
     Route: 048
     Dates: start: 20100928, end: 20101210
  2. BISOPROLOL FUMARATE [Concomitant]
     Indication: CARDIAC FAILURE
     Dates: start: 20060101, end: 20101215
  3. DICLOXACILLIN [Concomitant]
     Dosage: 1 G, 4X/DAY
     Route: 048
     Dates: start: 20101211
  4. SERTRALINE [Concomitant]
     Indication: DEPRESSION
     Dates: start: 20090101, end: 20101215
  5. SIMVASTATIN [Interacting]
     Route: 048
     Dates: start: 20060101, end: 20101215
  6. BISOPROLOL FUMARATE [Concomitant]
     Dosage: 5 MG, 2X/DAY
     Route: 048
     Dates: start: 20060101, end: 20101215
  7. FUCIDINE CAP [Interacting]
     Indication: CARDIAC INFECTION
     Dosage: 500 MG, TID
     Route: 048
     Dates: start: 20101109, end: 20101215
  8. CORODIL [Concomitant]
     Indication: CARDIAC FAILURE
     Dates: start: 20060101, end: 20101215
  9. CORODIL [Concomitant]
     Route: 048
     Dates: start: 20060101, end: 20101215
  10. CORDARONE [Interacting]
     Indication: CONDUCTION DISORDER
     Dosage: 200 MG, DAILY
     Route: 048
     Dates: start: 20100928, end: 20101210
  11. SIMVASTATIN [Suspect]
     Indication: HYPERCHOLESTEROLAEMIA
     Dosage: 40 MG, DAILY
     Route: 048
     Dates: start: 20060101, end: 20101215
  12. DICLOXACILLIN [Concomitant]
     Indication: INFECTION
     Dates: start: 20101211
  13. SERTRALINE [Concomitant]
     Dosage: 50 MG, 1X/DAY
     Route: 048
     Dates: start: 20090101, end: 20101215
  14. FUCIDINE CAP [Interacting]
     Dosage: 500 MG, 3X/DAY
     Route: 048
     Dates: start: 20101109, end: 20101215

REACTIONS (6)
  - DRUG INTERACTION [None]
  - RENAL FAILURE ACUTE [None]
  - RHABDOMYOLYSIS [None]
  - BLOOD CREATININE INCREASED [None]
  - ASPARTATE AMINOTRANSFERASE INCREASED [None]
  - ALANINE AMINOTRANSFERASE INCREASED [None]
